FAERS Safety Report 22076106 (Version 1)
Quarter: 2023Q1

REPORT INFORMATION
  Report Type: Report from Study
  Country: NO (occurrence: NO)
  Receive Date: 20230308
  Receipt Date: 20230308
  Transmission Date: 20230417
  Serious: Yes (Life-Threatening, Hospitalization, Other)
  Sender: FDA-Public Use
  Company Number: NO-ALS-000918

PATIENT
  Sex: Female

DRUGS (7)
  1. METFORMIN [Suspect]
     Active Substance: METFORMIN HYDROCHLORIDE
     Indication: Type 2 diabetes mellitus
     Dosage: 1000 MG INTO 3 TIMES
     Route: 065
  2. CANDESARTAN [Concomitant]
     Active Substance: CANDESARTAN
     Indication: Hypertension
     Dosage: 8 MG X 1
     Route: 065
  3. ATORVASTATIN [Concomitant]
     Active Substance: ATORVASTATIN
     Indication: Hypercholesterolaemia
     Dosage: 20 MG X 1
     Route: 065
  4. ASPIRIN [Concomitant]
     Active Substance: ASPIRIN
     Indication: Platelet disorder
     Dosage: 75 MG X 1
     Route: 065
  5. NOREPINEPHRINE [Concomitant]
     Active Substance: NOREPINEPHRINE
     Indication: Hypotension
     Dosage: 0.3 YG/KG/MIN
     Route: 065
  6. VASOPRESSIN [Concomitant]
     Active Substance: VASOPRESSIN
     Indication: Hypotension
     Route: 065
  7. EPINEPHRINE [Concomitant]
     Active Substance: EPINEPHRINE
     Indication: Hypotension
     Route: 065

REACTIONS (15)
  - Cardiac arrest [Unknown]
  - Hypothermia [Unknown]
  - Vasodilatation [Unknown]
  - Blood potassium increased [Unknown]
  - Blood sodium decreased [Unknown]
  - Blood chloride decreased [Unknown]
  - Blood calcium increased [Unknown]
  - Blood bicarbonate decreased [Unknown]
  - Base excess increased [Unknown]
  - Anion gap increased [Unknown]
  - Lethargy [Unknown]
  - Akathisia [Unknown]
  - Sepsis [Unknown]
  - Impaired self-care [Unknown]
  - Lactic acidosis [Unknown]
